FAERS Safety Report 9729896 (Version 1)
Quarter: 2013Q4

REPORT INFORMATION
  Report Type: Spontaneous
  Country: KP (occurrence: None)
  Receive Date: 20131203
  Receipt Date: 20131203
  Transmission Date: 20140711
  Serious: Yes (Other)
  Sender: FDA-Public Use
  Company Number: SYM-2013-13515

PATIENT
  Sex: 0

DRUGS (5)
  1. FLUOROURACIL [Suspect]
     Indication: PANCREATIC CARCINOMA
     Dosage: 2400 MG/M2,  EVERY OTHER WEEK, INTRAVENOUS BOLUS
     Route: 040
  2. OXALIPLATIN [Suspect]
     Indication: PANCREATIC CARCINOMA
     Dosage: 85 MG/M2, EVERY OTHER WEEK
  3. LEUCOVORIN [Suspect]
     Indication: PANCREATIC CARCINOMA
     Dosage: 400 MG/M2, EVERY OTHER WEEK
  4. IRINOTECAN [Suspect]
     Indication: PANCREATIC CARCINOMA
     Dosage: 180 MF/M2, EVERY OTHER WEEK
  5. GEMCITABINE (GEMCITABINE) (GEMCITABINE) [Concomitant]

REACTIONS (1)
  - Neutropenia [None]
